FAERS Safety Report 19589049 (Version 2)
Quarter: 2021Q3

REPORT INFORMATION
  Report Type: Other
  Country: JP (occurrence: JP)
  Receive Date: 20210721
  Receipt Date: 20210729
  Transmission Date: 20211014
  Serious: Yes (Other)
  Sender: FDA-Public Use
  Company Number: JP-ROCHE-2873501

PATIENT
  Age: 7 Decade
  Sex: Female

DRUGS (1)
  1. AVASTIN [Suspect]
     Active Substance: BEVACIZUMAB
     Indication: CEREBRAL RADIATION INJURY
     Route: 041

REACTIONS (2)
  - Off label use [Unknown]
  - Metastases to lymph nodes [Unknown]
